FAERS Safety Report 25607483 (Version 1)
Quarter: 2025Q3

REPORT INFORMATION
  Report Type: Spontaneous
  Country: TW (occurrence: TW)
  Receive Date: 20250725
  Receipt Date: 20250725
  Transmission Date: 20251021
  Serious: Yes (Other)
  Sender: DAIICHI
  Company Number: TW-DSJP-DSJ-2023-133952

PATIENT
  Age: 78 Year
  Sex: Female
  Weight: 62 kg

DRUGS (1)
  1. EDOXABAN [Suspect]
     Active Substance: EDOXABAN
     Indication: Cerebrovascular accident
     Route: 065

REACTIONS (4)
  - Colon cancer [Recovered/Resolved]
  - Ecchymosis [Recovered/Resolved]
  - Gastrointestinal haemorrhage [Recovered/Resolved]
  - Haemoglobin decreased [Recovered/Resolved]
